FAERS Safety Report 4310676-5 (Version None)
Quarter: 2004Q1

REPORT INFORMATION
  Report Type: 
  Country: None (occurrence: None)
  Receive Date: 20040301
  Receipt Date: 20040301
  Transmission Date: 20041129
  Serious: No
  Sender: FDA-Public Use
  Company Number: WAES 0312USA01951

PATIENT
  Age: 64 Year
  Sex: Male
  Weight: 73.4827 kg

DRUGS (3)
  1. ZETIA [Suspect]
     Indication: BLOOD CHOLESTEROL INCREASED
     Dosage: 10 MG/DAILY/PO
     Route: 048
     Dates: start: 20030901
  2. BEXTRA [Concomitant]
  3. LIPITOR [Concomitant]

REACTIONS (3)
  - DYSGEUSIA [None]
  - GLOSSODYNIA [None]
  - TONGUE DRY [None]
